FAERS Safety Report 10354980 (Version 1)
Quarter: 2014Q3

REPORT INFORMATION
  Report Type: Spontaneous
  Country: MX (occurrence: MX)
  Receive Date: 20140731
  Receipt Date: 20140731
  Transmission Date: 20150326
  Serious: Yes (Death, Hospitalization, Other)
  Sender: FDA-Public Use
  Company Number: MX-SA-2014SA098950

PATIENT
  Age: 92 Year
  Sex: Female
  Weight: 47 kg

DRUGS (2)
  1. COAPROVEL [Suspect]
     Active Substance: HYDROCHLOROTHIAZIDE\IRBESARTAN
     Indication: HYPERTENSION
     Dosage: STRENGTH: 300 MG OF IRBESARTAN AND 25 MG OF HYDROCHLOROTHIAZIDE
     Route: 048
     Dates: start: 2009, end: 201406
  2. AMLODIPINE [Concomitant]
     Active Substance: AMLODIPINE BESYLATE
     Indication: HYPERTENSION
     Dates: start: 2009, end: 201406

REACTIONS (3)
  - Postoperative renal failure [Fatal]
  - Blood pressure decreased [Unknown]
  - Intestinal obstruction [Unknown]

NARRATIVE: CASE EVENT DATE: 201406
